FAERS Safety Report 4860621-9 (Version None)
Quarter: 2005Q4

REPORT INFORMATION
  Report Type: 
  Country: None (occurrence: None)
  Receive Date: 20051216
  Receipt Date: 20051128
  Transmission Date: 20060501
  Serious: Yes (Life-Threatening, Hospitalization)
  Sender: FDA-Public Use
  Company Number: 200512759BWH

PATIENT
  Age: 62 Year
  Sex: Female

DRUGS (6)
  1. TRASYLOL [Suspect]
     Indication: QUADRUPLE VESSEL BYPASS GRAFT
     Dosage: 10000 KIU, ONCE, INTRAVENOUS; SEE IMAGE
     Route: 042
     Dates: start: 20051121
  2. TRASYLOL [Suspect]
     Indication: QUADRUPLE VESSEL BYPASS GRAFT
     Dosage: 10000 KIU, ONCE, INTRAVENOUS; SEE IMAGE
     Route: 042
     Dates: start: 20051121
  3. TRASYLOL [Suspect]
     Indication: QUADRUPLE VESSEL BYPASS GRAFT
     Dosage: 10000 KIU, ONCE, INTRAVENOUS; SEE IMAGE
     Route: 042
     Dates: start: 20051121
  4. PROCRIT [Concomitant]
  5. PROTAMINE [Concomitant]
  6. HEPARIN [Concomitant]

REACTIONS (10)
  - CARDIO-RESPIRATORY ARREST [None]
  - ECG SIGNS OF MYOCARDIAL ISCHAEMIA [None]
  - GRAFT THROMBOSIS [None]
  - HAEMATOCRIT DECREASED [None]
  - HEPATIC FAILURE [None]
  - HYPOTENSION [None]
  - PROCEDURAL COMPLICATION [None]
  - RENAL FAILURE [None]
  - VENOUS THROMBOSIS [None]
  - VENTRICULAR HYPOKINESIA [None]
